FAERS Safety Report 9106861 (Version 1)
Quarter: 2013Q1

REPORT INFORMATION
  Report Type: Report from Study
  Country: US (occurrence: US)
  Receive Date: 20130222
  Receipt Date: 20130222
  Transmission Date: 20140127
  Serious: Yes (Hospitalization)
  Sender: FDA-Public Use
  Company Number: US-TEVA-346354USA

PATIENT
  Age: 67 Year
  Sex: Male
  Weight: 91.1 kg

DRUGS (2)
  1. TREANDA [Suspect]
     Indication: CHRONIC LYMPHOCYTIC LEUKAEMIA
     Route: 042
     Dates: start: 20110824
  2. GS-1101 [Suspect]
     Indication: CHRONIC LYMPHOCYTIC LEUKAEMIA
     Route: 048
     Dates: start: 20110924

REACTIONS (2)
  - Pulmonary fibrosis [Not Recovered/Not Resolved]
  - Lung infection [Not Recovered/Not Resolved]
